FAERS Safety Report 8587497 (Version 3)
Quarter: 2015Q2

REPORT INFORMATION
  Report Type: Spontaneous
  Country: US (occurrence: US)
  Receive Date: 20120531
  Receipt Date: 20150401
  Transmission Date: 20150821
  Serious: Yes (Hospitalization, Disabling)
  Sender: FDA-Public Use
  Company Number: US-BAYER-2012-052365

PATIENT
  Age: 31 Year
  Sex: Female
  Weight: 48.98 kg

DRUGS (12)
  1. OCELLA [Suspect]
     Active Substance: DROSPIRENONE\ETHINYL ESTRADIOL
     Dosage: UNK
     Dates: start: 200111, end: 201101
  2. NAPRELAN [Concomitant]
     Active Substance: NAPROXEN SODIUM
     Dosage: 750 MG, UNK
  3. CLARITHROMYCIN. [Concomitant]
     Active Substance: CLARITHROMYCIN
  4. LO/OVRAL [Concomitant]
     Active Substance: ETHINYL ESTRADIOL\NORGESTREL
  5. YASMIN [Suspect]
     Active Substance: DROSPIRENONE\ETHINYL ESTRADIOL
     Dosage: UNK
     Dates: start: 200111, end: 201101
  6. VICODIN [Concomitant]
     Active Substance: ACETAMINOPHEN\HYDROCODONE BITARTRATE
  7. PROAIR HFA [Concomitant]
     Active Substance: ALBUTEROL SULFATE
     Dosage: 2 PUFF(S), QID PRN
     Dates: start: 20101109
  8. AMOXICILLIN. [Concomitant]
     Active Substance: AMOXICILLIN
     Dosage: 500MG ONE CAPSULE THREE TIMES DAILY
     Route: 048
     Dates: start: 20101109
  9. ALEVE [Concomitant]
     Active Substance: NAPROXEN SODIUM
     Dosage: 750 MG, UNK
  10. CITALOPRAM [Concomitant]
     Active Substance: CITALOPRAM HYDROBROMIDE
     Dosage: 20 MG,ONE TABLET QD
     Route: 048
     Dates: start: 20101210
  11. ULTRACET [Concomitant]
     Active Substance: ACETAMINOPHEN\TRAMADOL HYDROCHLORIDE
     Indication: PAIN
  12. CELEXA [Concomitant]
     Active Substance: CITALOPRAM HYDROBROMIDE
     Indication: DEPRESSION
     Dosage: 20 MG, ONE TABLET QD
     Route: 048
     Dates: start: 20101210

REACTIONS (6)
  - Depression [None]
  - Injury [None]
  - Mental disorder [None]
  - Pain [None]
  - Pulmonary embolism [None]
  - Pleural effusion [None]

NARRATIVE: CASE EVENT DATE: 2011
